FAERS Safety Report 24001092 (Version 1)
Quarter: 2024Q2

REPORT INFORMATION
  Report Type: Spontaneous
  Country: CN (occurrence: CN)
  Receive Date: 20240621
  Receipt Date: 20240621
  Transmission Date: 20240716
  Serious: Yes (Other)
  Sender: FDA-Public Use
  Company Number: CN-PFIZER INC-PV202400081055

PATIENT
  Age: 22 Year
  Sex: Female
  Weight: 44 kg

DRUGS (1)
  1. METHOTREXATE SODIUM [Suspect]
     Active Substance: METHOTREXATE SODIUM
     Indication: Ectopic pregnancy termination
     Dosage: 65 MG, 1X/DAY
     Route: 030
     Dates: start: 20240602, end: 20240609

REACTIONS (3)
  - Granulocyte count decreased [Recovering/Resolving]
  - Pain [Recovering/Resolving]
  - Off label use [Unknown]

NARRATIVE: CASE EVENT DATE: 20240602
